FAERS Safety Report 5660923-2 (Version None)
Quarter: 2008Q1

REPORT INFORMATION
  Report Type: 
  Country: None (occurrence: None)
  Receive Date: 20080311
  Receipt Date: 20080229
  Transmission Date: 20080703
  Serious: Yes (Other)
  Sender: FDA-Public Use
  Company Number: US-PFIZER INC-2008020000

PATIENT
  Sex: Female
  Weight: 83 kg

DRUGS (4)
  1. LYRICA [Suspect]
     Indication: BACK PAIN
  2. HYDROCODONE BITARTRATE [Concomitant]
  3. PREDNISONE TAB [Concomitant]
  4. ALL OTHER THERAPEUTIC PRODUCTS [Concomitant]

REACTIONS (2)
  - EYE SWELLING [None]
  - EYELID OEDEMA [None]
